FAERS Safety Report 8872117 (Version 1)
Quarter: 2012Q4

REPORT INFORMATION
  Report Type: Spontaneous
  Country: US (occurrence: None)
  Receive Date: 20121026
  Receipt Date: 20121026
  Transmission Date: 20130627
  Serious: No
  Sender: FDA-Public Use
  Company Number: None

PATIENT
  Age: 91 Year
  Sex: Female
  Weight: 67 kg

DRUGS (2)
  1. LISINOPRIL [Suspect]
     Dosage: 20 MG EVERY DAY PO
     Route: 048
     Dates: start: 20091215, end: 20120910
  2. HYDROCHLOROTHIAZIDE [Suspect]
     Dosage: 12.5 MG EVERY DAY PO
     Route: 048
     Dates: start: 20090221, end: 20120910

REACTIONS (1)
  - Gout [None]
